FAERS Safety Report 6821020-3 (Version None)
Quarter: 2010Q3

REPORT INFORMATION
  Report Type: 
  Country: None (occurrence: None)
  Receive Date: 20100707
  Receipt Date: 20071009
  Transmission Date: 20110219
  Serious: No
  Sender: FDA-Public Use
  Company Number: US-PFIZER INC-2007086632

PATIENT
  Sex: Male
  Weight: 72.7 kg

DRUGS (3)
  1. ZOLOFT [Suspect]
     Indication: DEPRESSION
     Route: 048
     Dates: start: 20060101
  2. SERTRALINE HCL [Suspect]
     Indication: DEPRESSION
     Route: 048
  3. AMBIEN [Concomitant]
     Indication: SLEEP DISORDER

REACTIONS (3)
  - DIZZINESS [None]
  - FATIGUE [None]
  - HEADACHE [None]
